FAERS Safety Report 12302236 (Version 2)
Quarter: 2016Q3

REPORT INFORMATION
  Report Type: Report from Study
  Country: AR (occurrence: AR)
  Receive Date: 20160425
  Receipt Date: 20160725
  Transmission Date: 20161109
  Serious: Yes (Hospitalization, Other)
  Sender: FDA-Public Use
  Company Number: AR-ABBVIE-16P-007-1613236-00

PATIENT
  Age: 79 Year
  Sex: Male

DRUGS (1)
  1. ZEMPLAR [Suspect]
     Active Substance: PARICALCITOL
     Indication: HYPERPARATHYROIDISM SECONDARY
     Route: 048
     Dates: start: 20110401

REACTIONS (6)
  - Arteriovenous fistula occlusion [Recovering/Resolving]
  - Discomfort [Unknown]
  - Pericardial effusion [Recovered/Resolved]
  - Muscular weakness [Not Recovered/Not Resolved]
  - Pleural effusion [Recovered/Resolved]
  - Arteriovenous fistula site complication [Unknown]

NARRATIVE: CASE EVENT DATE: 20160405
